FAERS Safety Report 7138279-8 (Version None)
Quarter: 2010Q4

REPORT INFORMATION
  Report Type: 
  Country: None (occurrence: None)
  Receive Date: 20101118
  Receipt Date: 20101111
  Transmission Date: 20110411
  Serious: Yes (Life-Threatening, Other)
  Sender: FDA-Public Use
  Company Number: CTI_01248_2010

PATIENT
  Sex: Female

DRUGS (2)
  1. FACTIVE [Suspect]
     Indication: INFECTIVE EXACERBATION OF CHRONIC OBSTRUCTIVE AIRWAYS DISEASE
     Dosage: (320 MG QD ORAL)
     Route: 048
     Dates: start: 20101004, end: 20101005
  2. TESSALON [Concomitant]

REACTIONS (2)
  - ANGIOEDEMA [None]
  - URTICARIA [None]
